FAERS Safety Report 6405181-6 (Version None)
Quarter: 2009Q4

REPORT INFORMATION
  Report Type: 
  Country: None (occurrence: None)
  Receive Date: 20091019
  Receipt Date: 20091016
  Transmission Date: 20100525
  Serious: Yes (Life-Threatening, Hospitalization)
  Sender: FDA-Public Use
  Company Number: FR-JNJFOC-20091005199

PATIENT
  Age: 37 Year
  Sex: Male

DRUGS (2)
  1. RISPERDAL [Suspect]
     Indication: ABNORMAL BEHAVIOUR
     Route: 048
  2. BETA BLOCKING AGENT [Concomitant]
     Route: 065

REACTIONS (4)
  - BRADYCARDIA [None]
  - COMA [None]
  - HYPONATRAEMIA [None]
  - MALAISE [None]
